FAERS Safety Report 6100890-0 (Version None)
Quarter: 2009Q1

REPORT INFORMATION
  Report Type: 
  Country: None (occurrence: None)
  Receive Date: 20090304
  Receipt Date: 20090220
  Transmission Date: 20090719
  Serious: Yes (Other)
  Sender: FDA-Public Use
  Company Number: US-JNJFOC-20090205708

PATIENT
  Sex: Female
  Weight: 98.43 kg

DRUGS (9)
  1. DURAGESIC-100 [Suspect]
     Route: 062
  2. DURAGESIC-100 [Suspect]
     Route: 062
  3. DURAGESIC-100 [Suspect]
     Indication: PAIN
     Route: 062
  4. LEVAQUIN [Suspect]
     Indication: BRONCHITIS
     Dosage: FOR 5 DAYS
     Route: 048
  5. XANAX [Concomitant]
     Indication: PANIC ATTACK
     Dosage: DAILY
     Route: 048
  6. CYMBALTA [Concomitant]
     Indication: DEPRESSION
     Dosage: DAILY
     Route: 048
  7. VICODIN [Concomitant]
     Indication: BREAKTHROUGH PAIN
     Dosage: EVERY EIGHT HOURS AS NEEDED
     Route: 048
  8. PREVACID [Concomitant]
     Indication: GASTROOESOPHAGEAL REFLUX DISEASE
     Route: 048
  9. MAXZIDE [Concomitant]
     Indication: FLUID RETENTION
     Dosage: DAILY
     Route: 048

REACTIONS (7)
  - BLOOD PRESSURE INCREASED [None]
  - BRONCHITIS [None]
  - CHRONIC OBSTRUCTIVE PULMONARY DISEASE [None]
  - HAEMOPTYSIS [None]
  - HYPERSOMNIA [None]
  - LETHARGY [None]
  - PALPITATIONS [None]
